FAERS Safety Report 9475952 (Version 1)
Quarter: 2013Q3

REPORT INFORMATION
  Report Type: Spontaneous
  Country: US (occurrence: US)
  Receive Date: 20130826
  Receipt Date: 20130826
  Transmission Date: 20140515
  Serious: No
  Sender: FDA-Public Use
  Company Number: US-BAYER-2013-100666

PATIENT
  Age: 44 Year
  Sex: Male
  Weight: 122.45 kg

DRUGS (1)
  1. ALEVE CAPLET [Suspect]
     Indication: PAIN IN EXTREMITY
     Dosage: 4 DF, ONCE
     Route: 048

REACTIONS (7)
  - Extra dose administered [None]
  - Chest pain [Recovered/Resolved]
  - Painful respiration [Recovered/Resolved]
  - Gastrooesophageal reflux disease [None]
  - Hypokalaemia [None]
  - Blood potassium decreased [None]
  - Drug ineffective [None]
